FAERS Safety Report 15471141 (Version 1)
Quarter: 2018Q4

REPORT INFORMATION
  Report Type: Spontaneous
  Country: US (occurrence: US)
  Receive Date: 20181006
  Receipt Date: 20181006
  Transmission Date: 20190205
  Serious: No
  Sender: FDA-Public Use
  Company Number: US-IPSEN BIOPHARMACEUTICALS, INC.-2018-15327

PATIENT
  Sex: Female

DRUGS (15)
  1. CAPECITABINE. [Concomitant]
     Active Substance: CAPECITABINE
  2. LOPERAMIDE [Concomitant]
     Active Substance: LOPERAMIDE
  3. HYOSCYAMINE. [Concomitant]
     Active Substance: HYOSCYAMINE
  4. PANCRELIPASE. [Concomitant]
     Active Substance: PANCRELIPASE
  5. MIRALAX [Concomitant]
     Active Substance: POLYETHYLENE GLYCOL 3350
  6. XERMELO [Suspect]
     Active Substance: TELOTRISTAT ETHYL
     Indication: CARCINOID SYNDROME
     Route: 048
     Dates: start: 20170510, end: 201708
  7. MULTIVITAMIN [Concomitant]
     Active Substance: VITAMINS
  8. OCTREOTIDE. [Concomitant]
     Active Substance: OCTREOTIDE
  9. XERMELO [Suspect]
     Active Substance: TELOTRISTAT ETHYL
     Route: 048
     Dates: start: 201808
  10. TEMOZOLOMIDE. [Concomitant]
     Active Substance: TEMOZOLOMIDE
  11. ONDANSETRON [Concomitant]
     Active Substance: ONDANSETRON
  12. SANDOSTATIN LAR DEPOT [Concomitant]
     Active Substance: OCTREOTIDE ACETATE
  13. VIACTIV(CALCIUM) [Concomitant]
  14. IBUPROFEN. [Concomitant]
     Active Substance: IBUPROFEN
  15. PROCHLORPERAZINE. [Concomitant]
     Active Substance: PROCHLORPERAZINE

REACTIONS (1)
  - Lymph nodes scan abnormal [Unknown]
